FAERS Safety Report 5956330-5 (Version None)
Quarter: 2008Q4

REPORT INFORMATION
  Report Type: 
  Country: None (occurrence: None)
  Receive Date: 20081118
  Receipt Date: 20081111
  Transmission Date: 20090506
  Serious: Yes (Other)
  Sender: FDA-Public Use
  Company Number: PHHY2008JP28119

PATIENT
  Age: 55 Year
  Sex: Female

DRUGS (2)
  1. LAMISIL [Suspect]
     Dosage: UNK
     Route: 048
     Dates: start: 20080911, end: 20081106
  2. ATELEC [Concomitant]
     Route: 048

REACTIONS (8)
  - ALANINE AMINOTRANSFERASE INCREASED [None]
  - ANOREXIA [None]
  - ASPARTATE AMINOTRANSFERASE INCREASED [None]
  - BLOOD ALKALINE PHOSPHATASE INCREASED [None]
  - BLOOD LACTATE DEHYDROGENASE INCREASED [None]
  - GAMMA-GLUTAMYLTRANSFERASE INCREASED [None]
  - OLIGURIA [None]
  - POLLAKIURIA [None]
